FAERS Safety Report 4713887-X (Version None)
Quarter: 2005Q3

REPORT INFORMATION
  Report Type: 
  Country: None (occurrence: None)
  Receive Date: 20050712
  Receipt Date: 20050623
  Transmission Date: 20060218
  Serious: Yes (Hospitalization, Other)
  Sender: FDA-Public Use
  Company Number: USA050187520

PATIENT
  Age: 62 Year
  Sex: Male

DRUGS (5)
  1. PROZAC [Suspect]
     Indication: DEPRESSION
     Dosage: 20 MG
     Dates: end: 20030101
  2. FLUOXETINE [Concomitant]
  3. XANAX (ALPRAZOLAM DUM) [Concomitant]
  4. PEPCID [Concomitant]
  5. VIAGRA [Concomitant]

REACTIONS (22)
  - ALCOHOLISM [None]
  - ATELECTASIS [None]
  - CHRONIC OBSTRUCTIVE PULMONARY DISEASE [None]
  - DRUG INEFFECTIVE [None]
  - HAEMATURIA [None]
  - HYPOAESTHESIA [None]
  - IMPRISONMENT [None]
  - LOSS OF CONSCIOUSNESS [None]
  - METABOLIC ENCEPHALOPATHY [None]
  - MULTIPLE DRUG OVERDOSE [None]
  - NYSTAGMUS [None]
  - PAIN IN EXTREMITY [None]
  - PHARMACEUTICAL PRODUCT COMPLAINT [None]
  - PNEUMONIA ASPIRATION [None]
  - RESPIRATORY FAILURE [None]
  - RHONCHI [None]
  - SINUSITIS [None]
  - SUICIDE ATTEMPT [None]
  - TACHYPNOEA [None]
  - THINKING ABNORMAL [None]
  - TOXIC INDUCED ENCEPHALOPATHY [None]
  - TRICUSPID VALVE INCOMPETENCE [None]
